FAERS Safety Report 10337588 (Version 1)
Quarter: 2014Q3

REPORT INFORMATION
  Report Type: Spontaneous
  Country: JP (occurrence: JP)
  Receive Date: 20140724
  Receipt Date: 20140724
  Transmission Date: 20150326
  Serious: Yes (Other)
  Sender: FDA-Public Use
  Company Number: JP-ACCORD-024914

PATIENT
  Age: 20 Year
  Sex: Male

DRUGS (3)
  1. MYCOPHENOLIC ACID [Suspect]
     Active Substance: MYCOPHENOLIC ACID
     Indication: RENAL TRANSPLANT
     Dosage: STARTED 3 WEEKS BEFORE OPERATION. DOSE REDUCED TO 500 MG/DAY.
  2. PREDNISOLONE. [Suspect]
     Active Substance: PREDNISOLONE
     Indication: RENAL TRANSPLANT
     Dosage: STARTED 3 WEEKS BEFORE OPERATION.
  3. TACROLIMUS. [Suspect]
     Active Substance: TACROLIMUS
     Indication: RENAL TRANSPLANT
     Dosage: STARTED 3 WEEKS BEFORE OPERATION.

REACTIONS (3)
  - Agranulocytosis [Recovered/Resolved]
  - Drug level increased [Unknown]
  - Diarrhoea [Unknown]
